FAERS Safety Report 8293293-4 (Version None)
Quarter: 2012Q2

REPORT INFORMATION
  Report Type: 
  Country: None (occurrence: None)
  Receive Date: 20120417
  Receipt Date: 20110412
  Transmission Date: 20120825
  Serious: No
  Sender: FDA-Public Use
  Company Number: US-ASTRAZENECA-2011SE21172

PATIENT
  Age: 47 Year
  Sex: Male

DRUGS (2)
  1. NEXIUM [Suspect]
     Dosage: 2 A DAY
     Route: 048
  2. NEXIUM [Suspect]
     Dosage: 1 A DAY
     Route: 048

REACTIONS (1)
  - VIRAL INFECTION [None]
